FAERS Safety Report 16650250 (Version 1)
Quarter: 2019Q3

REPORT INFORMATION
  Report Type: Spontaneous
  Country: US (occurrence: US)
  Receive Date: 20190731
  Receipt Date: 20190731
  Transmission Date: 20191004
  Serious: No
  Sender: FDA-Public Use
  Company Number: US-JNJFOC-20190737617

PATIENT
  Sex: Male

DRUGS (1)
  1. ZYRTEC-D [Suspect]
     Active Substance: CETIRIZINE HYDROCHLORIDE\PSEUDOEPHEDRINE HYDROCHLORIDE
     Indication: SLEEP DISORDER THERAPY
     Dosage: HALF A TABLET ?LAST ADMINISTRATION: 24/JUL/2019
     Route: 048

REACTIONS (2)
  - Product use in unapproved indication [Unknown]
  - Wrong technique in product usage process [Unknown]
